FAERS Safety Report 20179921 (Version 1)
Quarter: 2021Q4

REPORT INFORMATION
  Report Type: Spontaneous
  Country: DE (occurrence: None)
  Receive Date: 20211214
  Receipt Date: 20211214
  Transmission Date: 20220303
  Serious: Yes (Congenital Anomaly, Other)
  Sender: FDA-Public Use
  Company Number: 2021A854499

PATIENT
  Age: 1 Day
  Sex: Female
  Weight: 4.1 kg

DRUGS (2)
  1. QUETIAPINE [Suspect]
     Active Substance: QUETIAPINE
     Indication: Bipolar disorder
     Dosage: 50 [MG/D ]
     Route: 064
     Dates: start: 20201020, end: 20210727
  2. ARIPIPRAZOLE [Suspect]
     Active Substance: ARIPIPRAZOLE
     Indication: Bipolar disorder
     Dosage: 5 [MG/D ]
     Route: 064
     Dates: start: 20201020, end: 20210727

REACTIONS (7)
  - Enterococcal sepsis [Recovered/Resolved]
  - Right ventricular false tendon [Unknown]
  - Neonatal hypotension [Recovered/Resolved]
  - Meconium aspiration syndrome [Recovered/Resolved]
  - Pulmonary artery stenosis congenital [Unknown]
  - Atrial septal defect [Unknown]
  - Foetal exposure during pregnancy [Unknown]

NARRATIVE: CASE EVENT DATE: 20210727
